FAERS Safety Report 6055972-9 (Version None)
Quarter: 2009Q1

REPORT INFORMATION
  Report Type: 
  Country: None (occurrence: None)
  Receive Date: 20090128
  Receipt Date: 20090123
  Transmission Date: 20090719
  Serious: Yes (Hospitalization)
  Sender: FDA-Public Use
  Company Number: US-B.I. PHARMACEUTICALS,INC./RIDGEFIELD-2009-BP-00901BP

PATIENT
  Sex: Female

DRUGS (8)
  1. SPIRIVA [Suspect]
     Indication: CHRONIC OBSTRUCTIVE PULMONARY DISEASE
     Dosage: 18MCG
     Route: 055
     Dates: start: 20080101
  2. LIPITOR [Concomitant]
     Indication: BLOOD CHOLESTEROL INCREASED
     Route: 048
  3. METFORMIN HCL [Concomitant]
     Indication: DIABETES MELLITUS
     Route: 048
  4. NOVOLOG [Concomitant]
     Indication: DIABETES MELLITUS
     Route: 058
  5. LANTUS [Concomitant]
     Indication: DIABETES MELLITUS
     Route: 058
  6. METOPROLOL TARTRATE [Concomitant]
     Indication: HEART RATE IRREGULAR
     Route: 048
  7. COUMADIN [Concomitant]
     Indication: HEART RATE IRREGULAR
     Route: 048
  8. AMIODARONE HCL [Concomitant]
     Indication: HEART RATE IRREGULAR
     Route: 048

REACTIONS (1)
  - ARRHYTHMIA [None]
